FAERS Safety Report 6098245-0 (Version None)
Quarter: 2009Q1

REPORT INFORMATION
  Report Type: 
  Country: None (occurrence: None)
  Receive Date: 20090227
  Receipt Date: 20090219
  Transmission Date: 20090719
  Serious: Yes (Hospitalization)
  Sender: FDA-Public Use
  Company Number: US-AMGEN-QUU334714

PATIENT
  Sex: Female

DRUGS (8)
  1. EPOGEN [Suspect]
     Indication: DIALYSIS
     Route: 042
  2. SENSIPAR [Suspect]
     Indication: HYPERPARATHYROIDISM SECONDARY
     Route: 065
  3. CRESTOR [Concomitant]
  4. ALESSE [Concomitant]
  5. BENICAR [Concomitant]
  6. FUROSEMIDE [Concomitant]
  7. RENAGEL [Concomitant]
  8. LEVOTHYROXINE SODIUM [Concomitant]

REACTIONS (4)
  - ARRHYTHMIA [None]
  - DYSPNOEA [None]
  - HEART RATE INCREASED [None]
  - HYPOTENSION [None]
